FAERS Safety Report 5589294-7 (Version None)
Quarter: 2008Q1

REPORT INFORMATION
  Report Type: 
  Country: None (occurrence: None)
  Receive Date: 20080109
  Receipt Date: 20080109
  Transmission Date: 20080703
  Serious: Yes (Other)
  Sender: FDA-Public Use
  Company Number: None

PATIENT
  Sex: Female
  Weight: 152.4086 kg

DRUGS (2)
  1. EFFEXOR XR [Suspect]
     Indication: HOT FLUSH
     Dosage: PO
     Route: 048
     Dates: start: 20071201
  2. EFFEXOR XR [Suspect]
     Indication: MENOPAUSAL DEPRESSION
     Dosage: PO
     Route: 048
     Dates: start: 20071201

REACTIONS (2)
  - ABNORMAL BEHAVIOUR [None]
  - MALAISE [None]
